FAERS Safety Report 10191343 (Version 1)
Quarter: 2014Q2

REPORT INFORMATION
  Report Type: Spontaneous
  Country: IT (occurrence: None)
  Receive Date: 20140521
  Receipt Date: 20140521
  Transmission Date: 20141212
  Serious: Yes (Hospitalization)
  Sender: FDA-Public Use
  Company Number: AUR-APL-2014-05913

PATIENT
  Sex: Male

DRUGS (1)
  1. CARVEDILOL (CARVEDILOL) [Suspect]
     Indication: PRODUCT USED FOR UNKNOWN INDICATION

REACTIONS (4)
  - Head injury [None]
  - Loss of consciousness [None]
  - Retrograde amnesia [None]
  - Syncope [None]
